FAERS Safety Report 6536862-1 (Version None)
Quarter: 2010Q1

REPORT INFORMATION
  Report Type: 
  Country: None (occurrence: None)
  Receive Date: 20100113
  Receipt Date: 20100104
  Transmission Date: 20100710
  Serious: Yes (Other)
  Sender: FDA-Public Use
  Company Number: US-ABBOTT-10P-163-0617444-00

PATIENT
  Sex: Female

DRUGS (5)
  1. HUMIRA [Suspect]
     Indication: RHEUMATOID ARTHRITIS
     Dosage: ON HOLD FOR SURGERY
  2. HUMIRA [Suspect]
     Dates: start: 20080101, end: 20091201
  3. METHOTREXATE [Concomitant]
     Indication: RHEUMATOID ARTHRITIS
     Dosage: ON HOLD FOR SURGERY
     Dates: start: 20091001
  4. DICLOFENAC SODIUM [Concomitant]
     Indication: RHEUMATOID ARTHRITIS
     Dosage: ON HOLD FOR SURGERY
  5. PLAQUENIL [Concomitant]
     Indication: RHEUMATOID ARTHRITIS
     Dosage: ON HOLD FOR SURGERY

REACTIONS (3)
  - MOBILITY DECREASED [None]
  - RHEUMATOID ARTHRITIS [None]
  - SCAR [None]
